FAERS Safety Report 17514165 (Version 1)
Quarter: 2020Q1

REPORT INFORMATION
  Report Type: Spontaneous
  Country: NL (occurrence: NL)
  Receive Date: 20200309
  Receipt Date: 20200309
  Transmission Date: 20200409
  Serious: Yes (Other)
  Sender: FDA-Public Use
  Company Number: NL-AUROBINDO-AUR-APL-2020-011288

PATIENT
  Sex: Female
  Weight: 62 kg

DRUGS (1)
  1. OXALIPLATIN 5MG/ML [Suspect]
     Active Substance: OXALIPLATIN
     Indication: COLORECTAL CANCER METASTATIC
     Dosage: 1 DOSAGE FORM 3 WEEK (OPLOSSING VOOR INFUUS, 5 MG/ML (MILLIGRAM PER MILLILITER), 1 KEER PER 3 WEKEN)
     Route: 065
     Dates: start: 20200110

REACTIONS (2)
  - Dysgeusia [Not Recovered/Not Resolved]
  - Parosmia [Not Recovered/Not Resolved]
